FAERS Safety Report 9220866 (Version 1)
Quarter: 2013Q2

REPORT INFORMATION
  Report Type: Spontaneous
  Country: US (occurrence: US)
  Receive Date: 20130409
  Receipt Date: 20130409
  Transmission Date: 20140414
  Serious: Yes (Other)
  Sender: FDA-Public Use
  Company Number: US-PFIZER INC-2013110192

PATIENT
  Sex: Female

DRUGS (3)
  1. GABAPENTIN [Suspect]
     Indication: PAIN
     Dosage: UNK
  2. NORCO [Suspect]
     Dosage: UNK
  3. FENTANYL [Suspect]
     Dosage: UNK

REACTIONS (6)
  - Spinal disorder [Unknown]
  - Fibromyalgia [Unknown]
  - Osteoarthritis [Unknown]
  - Temporomandibular joint syndrome [Unknown]
  - Arthropathy [Unknown]
  - Arthritis [Unknown]
